FAERS Safety Report 7905818-6 (Version None)
Quarter: 2011Q4

REPORT INFORMATION
  Report Type: 
  Country: None (occurrence: None)
  Receive Date: 20111108
  Receipt Date: 20111025
  Transmission Date: 20120403
  Serious: Yes (Hospitalization)
  Sender: FDA-Public Use
  Company Number: CIO11019483

PATIENT
  Sex: Male

DRUGS (1)
  1. VAPORUB, REGULAR SCENT(CAMPHOR 143.07 MG, CEDAR LEAF OIL 20.4 MG, EUCA [Suspect]
     Dosage: 1 APPLIC, 1 /DAY, TOPICAL
     Route: 061

REACTIONS (3)
  - SKIN GRAFT [None]
  - BURNS THIRD DEGREE [None]
  - APPLICATION SITE BURN [None]
